FAERS Safety Report 9928548 (Version 1)
Quarter: 2014Q1

REPORT INFORMATION
  Report Type: Spontaneous
  Country: US (occurrence: None)
  Receive Date: 20140225
  Receipt Date: 20140225
  Transmission Date: 20141002
  Serious: Yes (Other)
  Sender: FDA-Public Use
  Company Number: 2014US003033

PATIENT
  Age: 59 Year
  Sex: Female

DRUGS (1)
  1. ICLUSIG (PONATINIB) [Suspect]
     Indication: CHRONIC MYELOID LEUKAEMIA
     Route: 048
     Dates: start: 201301, end: 201311

REACTIONS (4)
  - Cerebrovascular accident [None]
  - Skin toxicity [None]
  - Renal injury [None]
  - Arterial disorder [None]
